FAERS Safety Report 21881808 (Version 2)
Quarter: 2025Q1

REPORT INFORMATION
  Report Type: Report from Study
  Country: US (occurrence: US)
  Receive Date: 20230119
  Receipt Date: 20250119
  Transmission Date: 20250409
  Serious: No
  Sender: ACCORD
  Company Number: US-Accord-253396

PATIENT
  Sex: Male

DRUGS (1)
  1. CLOZAPINE [Suspect]
     Active Substance: CLOZAPINE
     Indication: Product used for unknown indication

REACTIONS (1)
  - Neutrophilia [Recovered/Resolved]
